FAERS Safety Report 12406276 (Version 2)
Quarter: 2016Q2

REPORT INFORMATION
  Report Type: Report from Study
  Country: US (occurrence: US)
  Receive Date: 20160526
  Receipt Date: 20160608
  Transmission Date: 20160815
  Serious: No
  Sender: FDA-Public Use
  Company Number: US-AMGEN-USASL2016066058

PATIENT
  Age: 56 Year
  Sex: Female

DRUGS (1)
  1. ENBREL [Suspect]
     Active Substance: ETANERCEPT
     Indication: ANKYLOSING SPONDYLITIS
     Dosage: 50 MG, UNK
     Route: 065
     Dates: start: 201605

REACTIONS (8)
  - Pain in extremity [Unknown]
  - Wheezing [Unknown]
  - Arthralgia [Unknown]
  - Injection site pain [Unknown]
  - Musculoskeletal stiffness [Recovering/Resolving]
  - Mobility decreased [Not Recovered/Not Resolved]
  - Gait disturbance [Unknown]
  - Limb discomfort [Unknown]

NARRATIVE: CASE EVENT DATE: 2016
